FAERS Safety Report 12220597 (Version 1)
Quarter: 2016Q1

REPORT INFORMATION
  Report Type: Spontaneous
  Country: CH (occurrence: CH)
  Receive Date: 20160330
  Receipt Date: 20160330
  Transmission Date: 20160526
  Serious: Yes (Other)
  Sender: FDA-Public Use
  Company Number: CH-BAYER-2016-053484

PATIENT
  Age: 34 Year
  Sex: Male

DRUGS (4)
  1. AVALOX [Suspect]
     Active Substance: MOXIFLOXACIN HYDROCHLORIDE
     Indication: PULMONARY TUBERCULOSIS
     Dosage: 400 MG, QD
     Route: 040
     Dates: start: 20140919
  2. LAMPRENE [Concomitant]
     Active Substance: CLOFAZIMINE
     Dosage: 100 MG, QD
     Route: 048
     Dates: start: 20140919
  3. PIRILENE [Suspect]
     Active Substance: PYRAZINAMIDE
     Indication: PULMONARY TUBERCULOSIS
     Dosage: 2000 MG, QD
     Route: 048
     Dates: start: 20140913
  4. PROTHIONAMIDE [Concomitant]
     Active Substance: PROTIONAMIDE
     Dosage: 750 MG, QD
     Route: 048
     Dates: start: 20140919

REACTIONS (2)
  - Myositis [Not Recovered/Not Resolved]
  - Blood creatine phosphokinase increased [Not Recovered/Not Resolved]

NARRATIVE: CASE EVENT DATE: 20160218
